FAERS Safety Report 6970108-5 (Version None)
Quarter: 2010Q3

REPORT INFORMATION
  Report Type: 
  Country: None (occurrence: None)
  Receive Date: 20100908
  Receipt Date: 20100903
  Transmission Date: 20110219
  Serious: Yes (Hospitalization)
  Sender: FDA-Public Use
  Company Number: FR-WYE-G05718910

PATIENT
  Sex: Female

DRUGS (5)
  1. IBUPROFEN (ADVIL) [Suspect]
     Indication: PYREXIA
     Dosage: UNKNOWN
     Route: 048
     Dates: start: 20100204, end: 20100210
  2. VALPROATE SODIUM [Concomitant]
     Indication: MYOCLONIC EPILEPSY
     Dosage: 2 DOSE FORMS TOTAL DAILY
     Route: 048
     Dates: start: 20080101
  3. DOLIPRANE [Concomitant]
     Indication: PYREXIA
     Dosage: UNKNOWN
     Route: 048
     Dates: start: 20100204, end: 20100210
  4. URBANYL [Concomitant]
     Indication: MYOCLONIC EPILEPSY
     Dosage: 1 DOSE FORM TOTAL DAILY
     Route: 048
     Dates: start: 20080416
  5. MAXILASE [Concomitant]
     Indication: PYREXIA
     Dosage: UNKNOWN
     Route: 048
     Dates: start: 20100204, end: 20100210

REACTIONS (4)
  - APLASIA PURE RED CELL [None]
  - NEPHROTIC SYNDROME [None]
  - RENAL FAILURE ACUTE [None]
  - THROMBOCYTOPENIA [None]
